FAERS Safety Report 10559030 (Version 1)
Quarter: 2014Q4

REPORT INFORMATION
  Report Type: Spontaneous
  Country: FR (occurrence: FR)
  Receive Date: 20141103
  Receipt Date: 20141103
  Transmission Date: 20150529
  Serious: Yes (Death)
  Sender: FDA-Public Use
  Company Number: FR-ROCHE-1480681

PATIENT
  Age: 89 Year
  Sex: Male

DRUGS (9)
  1. AMLOR [Concomitant]
     Active Substance: AMLODIPINE BESYLATE
  2. PREVISCAN (FRANCE) [Concomitant]
     Active Substance: FLUINDIONE
     Route: 065
     Dates: start: 20140326, end: 20140602
  3. TRILEPTAL [Concomitant]
     Active Substance: OXCARBAZEPINE
  4. DIFFU-K [Concomitant]
     Active Substance: POTASSIUM CHLORIDE
     Route: 065
     Dates: start: 201403
  5. DORZOLAMIDE [Concomitant]
     Active Substance: DORZOLAMIDE
  6. ROCEPHINE [Suspect]
     Active Substance: CEFTRIAXONE SODIUM
     Indication: PYELONEPHRITIS ACUTE
     Dosage: 1 G/24 HOURS
     Route: 042
     Dates: start: 20140603
  7. AUGMENTIN [Suspect]
     Active Substance: AMOXICILLIN\CLAVULANATE POTASSIUM
     Indication: PYELONEPHRITIS ACUTE
     Dosage: SINGLE INTAKE
     Route: 042
     Dates: start: 20140603, end: 20140603
  8. MIRTAZAPINE. [Concomitant]
     Active Substance: MIRTAZAPINE
  9. MACROGOL [Concomitant]
     Active Substance: POLYETHYLENE GLYCOLS

REACTIONS (3)
  - Agranulocytosis [Fatal]
  - Anaemia [Fatal]
  - Thrombocytopenia [Fatal]

NARRATIVE: CASE EVENT DATE: 20140604
